FAERS Safety Report 19046392 (Version 1)
Quarter: 2021Q1

REPORT INFORMATION
  Report Type: Spontaneous
  Country: US (occurrence: US)
  Receive Date: 20210323
  Receipt Date: 20210323
  Transmission Date: 20210420
  Serious: No
  Sender: FDA-Public Use
  Company Number: US-PFIZER INC-2021235335

PATIENT
  Sex: Female

DRUGS (1)
  1. XANAX [Suspect]
     Active Substance: ALPRAZOLAM
     Dosage: A PIECE EVERY DAY

REACTIONS (4)
  - Decreased appetite [Unknown]
  - Insomnia [Unknown]
  - Tremor [Unknown]
  - Nervousness [Unknown]
